FAERS Safety Report 7393817-5 (Version None)
Quarter: 2011Q2

REPORT INFORMATION
  Report Type: 
  Country: None (occurrence: None)
  Receive Date: 20110405
  Receipt Date: 20110328
  Transmission Date: 20111010
  Serious: Yes (Hospitalization)
  Sender: FDA-Public Use
  Company Number: US-SANOFI-AVENTIS-2011SA019436

PATIENT
  Age: 67 Year
  Sex: Female

DRUGS (2)
  1. ELOXATIN [Suspect]
     Route: 041
  2. XELODA [Suspect]
     Route: 065

REACTIONS (2)
  - PAIN IN EXTREMITY [None]
  - ACUTE CORONARY SYNDROME [None]
